FAERS Safety Report 16615345 (Version 1)
Quarter: 2019Q3

REPORT INFORMATION
  Report Type: Spontaneous
  Country: PT (occurrence: PT)
  Receive Date: 20190723
  Receipt Date: 20190723
  Transmission Date: 20191004
  Serious: Yes (Other)
  Sender: FDA-Public Use
  Company Number: PT-AUROBINDO-AUR-APL-2019-042846

PATIENT

DRUGS (13)
  1. OXALIPLATIN. [Suspect]
     Active Substance: OXALIPLATIN
     Indication: METASTASES TO LIVER
     Dosage: UNK
     Route: 065
  2. OXALIPLATIN. [Suspect]
     Active Substance: OXALIPLATIN
     Indication: ADENOCARCINOMA OF COLON
  3. FLUOROURACIL. [Suspect]
     Active Substance: FLUOROURACIL
     Indication: ADENOCARCINOMA OF COLON
     Dosage: UNK, CYCLICAL
     Route: 065
     Dates: start: 201510, end: 2018
  4. FLUOROURACIL. [Suspect]
     Active Substance: FLUOROURACIL
     Indication: COLORECTAL CANCER METASTATIC
  5. FOLINIC ACID [Suspect]
     Active Substance: LEUCOVORIN
     Indication: ADENOCARCINOMA OF COLON
     Dosage: UNK, CYCLICAL
     Route: 065
     Dates: start: 201510, end: 2018
  6. FLUOROURACIL. [Suspect]
     Active Substance: FLUOROURACIL
     Indication: METASTASES TO LIVER
     Dosage: UNK
     Route: 065
  7. OXALIPLATIN. [Suspect]
     Active Substance: OXALIPLATIN
     Indication: COLORECTAL CANCER METASTATIC
     Dosage: UNK, CYCLICAL
     Route: 065
     Dates: start: 201510, end: 201802
  8. VECTIBIX [Suspect]
     Active Substance: PANITUMUMAB
     Indication: ADENOCARCINOMA OF COLON
     Dosage: UNK, CYCLICAL
     Route: 065
     Dates: start: 201510
  9. VECTIBIX [Suspect]
     Active Substance: PANITUMUMAB
     Dosage: UNK, CYCLICAL
     Route: 065
     Dates: start: 201706, end: 201802
  10. VECTIBIX [Suspect]
     Active Substance: PANITUMUMAB
     Indication: METASTASES TO LIVER
     Dosage: UNK, CYCLICAL
     Route: 065
     Dates: start: 201604, end: 2016
  11. VECTIBIX [Suspect]
     Active Substance: PANITUMUMAB
     Indication: COLORECTAL CANCER METASTATIC
     Dosage: UNK, CYCLICAL
     Route: 065
     Dates: start: 201610, end: 201702
  12. FOLINIC ACID [Suspect]
     Active Substance: LEUCOVORIN
     Indication: COLORECTAL CANCER METASTATIC
     Dosage: UNK
     Route: 065
  13. FOLINIC ACID [Suspect]
     Active Substance: LEUCOVORIN
     Indication: METASTASES TO LIVER

REACTIONS (8)
  - Constipation [Unknown]
  - Hypomagnesaemia [Unknown]
  - Pelvic mass [Unknown]
  - Dry skin [Unknown]
  - Neurotoxicity [Unknown]
  - Adenocarcinoma of colon [Unknown]
  - Pruritus [Unknown]
  - Haematotoxicity [Unknown]

NARRATIVE: CASE EVENT DATE: 201610
